FAERS Safety Report 16984181 (Version 1)
Quarter: 2019Q4

REPORT INFORMATION
  Report Type: Spontaneous
  Country: US (occurrence: US)
  Receive Date: 20190917
  Receipt Date: 20190917
  Transmission Date: 20200122
  Serious: No
  Sender: FDA-Public Use
  Company Number: None

PATIENT
  Age: 33 Year
  Sex: Male

DRUGS (7)
  1. ALBUTEROL. [Concomitant]
     Active Substance: ALBUTEROL
  2. BUSPRINE [Concomitant]
  3. TRIENTINE HCL 250MG [Suspect]
     Active Substance: TRIENTINE HYDROCHLORIDE
     Route: 048
  4. OXYCODONE [Concomitant]
     Active Substance: OXYCODONE
  5. BACLOFEN. [Concomitant]
     Active Substance: BACLOFEN
  6. CITALOPRAM [Concomitant]
     Active Substance: CITALOPRAM HYDROBROMIDE
  7. ONDANSETRON [Concomitant]
     Active Substance: ONDANSETRON
     Route: 048

REACTIONS (1)
  - Hospitalisation [None]

NARRATIVE: CASE EVENT DATE: 20190915
